FAERS Safety Report 16280363 (Version 1)
Quarter: 2019Q2

REPORT INFORMATION
  Report Type: Report from Study
  Country: US (occurrence: US)
  Receive Date: 20190507
  Receipt Date: 20190507
  Transmission Date: 20190711
  Serious: Yes (Other)
  Sender: FDA-Public Use
  Company Number: US-CIPLA LTD.-2019US03021

PATIENT

DRUGS (4)
  1. ALISERTIB [Suspect]
     Active Substance: ALISERTIB
     Indication: GASTRIC CANCER
     Dosage: 20 MILLIGRAM, BID ON DAYS 1-3 (DOSE LEVEL 2)
     Route: 065
  2. LEUCOVORIN                         /00566701/ [Suspect]
     Active Substance: LEUCOVORIN
     Indication: GASTRIC CANCER
     Dosage: 400 MILLIGRAM/SQ. METER ON DAY 2
     Route: 065
  3. 5 FU [Suspect]
     Active Substance: FLUOROURACIL
     Indication: GASTRIC CANCER
     Dosage: 2400 MILLIGRAM/SQ. METER ON DAYS 2 TO 4
  4. OXALIPLATIN. [Suspect]
     Active Substance: OXALIPLATIN
     Indication: GASTRIC CANCER
     Dosage: 850 MILLIGRAM/SQ. METER ON DAY 2
     Route: 065

REACTIONS (1)
  - Malignant neoplasm progression [Unknown]
